FAERS Safety Report 5486435-7 (Version None)
Quarter: 2007Q3

REPORT INFORMATION
  Report Type: 
  Country: None (occurrence: None)
  Receive Date: 20070919
  Receipt Date: 20070711
  Transmission Date: 20080115
  Serious: No
  Sender: FDA-Public Use
  Company Number: 2007RL000320

PATIENT
  Sex: Male

DRUGS (1)
  1. OMACOR [Suspect]
     Indication: DRUG USE FOR UNKNOWN INDICATION
     Dosage: 2 GM; BID; PO
     Route: 048
     Dates: start: 20070601

REACTIONS (2)
  - DYSURIA [None]
  - INFLUENZA LIKE ILLNESS [None]
